FAERS Safety Report 4285124-4 (Version None)
Quarter: 2004Q1

REPORT INFORMATION
  Report Type: 
  Country: None (occurrence: None)
  Receive Date: 20040204
  Receipt Date: 20040123
  Transmission Date: 20041129
  Serious: Yes (Other)
  Sender: FDA-Public Use
  Company Number: JP-GLAXOSMITHKLINE-B0321052A

PATIENT
  Age: 77 Year
  Sex: Male

DRUGS (3)
  1. RANITIDINE HYDROCHLORIDE [Suspect]
     Dosage: 100MG PER DAY
     Route: 042
     Dates: start: 20040109, end: 20040119
  2. PHENYTOIN [Suspect]
     Dates: end: 20040122
  3. EDARAVONE [Suspect]
     Route: 042
     Dates: end: 20040119

REACTIONS (1)
  - LIVER FUNCTION TEST ABNORMAL [None]
